FAERS Safety Report 7564663-4 (Version None)
Quarter: 2011Q2

REPORT INFORMATION
  Report Type: 
  Country: None (occurrence: None)
  Receive Date: 20110622
  Receipt Date: 20100907
  Transmission Date: 20111010
  Serious: Yes (Death)
  Sender: FDA-Public Use
  Company Number: US-MYLANLABS-2010S1014457

PATIENT
  Age: 49 Year
  Sex: Female
  Weight: 83.46 kg

DRUGS (5)
  1. FLUOXETINE HCL [Concomitant]
     Route: 048
  2. VITAMIN D [Concomitant]
     Route: 048
  3. CLONAZEPAM [Concomitant]
     Route: 048
  4. ACETAMINOPHEN [Concomitant]
     Dosage: PRN
     Route: 048
  5. CLOZAPINE [Suspect]
     Route: 048

REACTIONS (1)
  - DEATH [None]
